FAERS Safety Report 7203848-3 (Version None)
Quarter: 2010Q4

REPORT INFORMATION
  Report Type: 
  Country: None (occurrence: None)
  Receive Date: 20101217
  Receipt Date: 20101206
  Transmission Date: 20110411
  Serious: Yes (Life-Threatening, Hospitalization)
  Sender: FDA-Public Use
  Company Number: 2010AC000577

PATIENT
  Age: 82 Year
  Sex: Male

DRUGS (14)
  1. DIGOXIN [Suspect]
     Indication: HEART RATE IRREGULAR
     Dosage: 0.25 MG; QD; PO
     Route: 048
     Dates: start: 20041001, end: 20080424
  2. DIGOXIN [Suspect]
     Dosage: 0.125 MG; QD; PO
     Route: 048
     Dates: start: 20080626
  3. COUMADIN [Concomitant]
  4. COREG [Concomitant]
  5. SPIRONOLACTONE [Concomitant]
  6. LEXAPRO [Concomitant]
  7. ALTACE [Concomitant]
  8. BUMEX [Concomitant]
  9. BACTRIM [Concomitant]
  10. TYLENOL [Concomitant]
  11. DILTIAZEM [Concomitant]
  12. DIGIBIND [Concomitant]
  13. VITAMIN K TAB [Concomitant]
  14. FRESH FROZEN PLASMA [Concomitant]

REACTIONS (37)
  - AORTIC VALVE SCLEROSIS [None]
  - ATRIAL FIBRILLATION [None]
  - BLOOD PRESSURE [None]
  - BRADYARRHYTHMIA [None]
  - BUNDLE BRANCH BLOCK LEFT [None]
  - CARDIAC FAILURE CONGESTIVE [None]
  - CARDIOACTIVE DRUG LEVEL INCREASED [None]
  - CARDIOMEGALY [None]
  - CARDIOMYOPATHY [None]
  - CEREBRAL ATROPHY [None]
  - COAGULOPATHY [None]
  - CONCUSSION [None]
  - CONGESTIVE CARDIOMYOPATHY [None]
  - DEHYDRATION [None]
  - DEMENTIA [None]
  - DEPRESSION [None]
  - DIZZINESS POSTURAL [None]
  - DYSPNOEA EXERTIONAL [None]
  - EJECTION FRACTION DECREASED [None]
  - ELECTROCARDIOGRAM ST SEGMENT DEPRESSION [None]
  - EXTRAPYRAMIDAL DISORDER [None]
  - FALL [None]
  - HEAD INJURY [None]
  - INCORRECT DOSE ADMINISTERED [None]
  - INTERNATIONAL NORMALISED RATIO INCREASED [None]
  - LACERATION [None]
  - LOSS OF CONSCIOUSNESS [None]
  - MULTIPLE INJURIES [None]
  - OEDEMA PERIPHERAL [None]
  - PARASOMNIA [None]
  - PULMONARY CONGESTION [None]
  - RAPID EYE MOVEMENTS SLEEP ABNORMAL [None]
  - RENAL FAILURE ACUTE [None]
  - SUBDURAL HAEMATOMA [None]
  - SYNCOPE [None]
  - THERAPEUTIC AGENT TOXICITY [None]
  - TRICUSPID VALVE INCOMPETENCE [None]
